FAERS Safety Report 8007322-6 (Version None)
Quarter: 2011Q4

REPORT INFORMATION
  Report Type: 
  Country: None (occurrence: None)
  Receive Date: 20111227
  Receipt Date: 20111222
  Transmission Date: 20120403
  Serious: Yes (Death, Hospitalization)
  Sender: FDA-Public Use
  Company Number: US-ASTELLAS-2011US007510

PATIENT
  Sex: Female

DRUGS (2)
  1. UNSPECIFIED MEDICATION [Suspect]
     Indication: PRODUCT USED FOR UNKNOWN INDICATION
     Dosage: UNK
     Route: 065
  2. VESICARE [Suspect]
     Indication: URINARY INCONTINENCE
     Dosage: 10 MG, UNKNOWN/D
     Route: 048
     Dates: start: 20101217, end: 20110908

REACTIONS (2)
  - URINARY INCONTINENCE [None]
  - PNEUMONIA [None]
